FAERS Safety Report 16382766 (Version 2)
Quarter: 2019Q3

REPORT INFORMATION
  Report Type: Report from Study
  Country: US (occurrence: US)
  Receive Date: 20190603
  Receipt Date: 20190712
  Transmission Date: 20191004
  Serious: Yes (Other)
  Sender: FDA-Public Use
  Company Number: US-PFIZER INC-2019235789

PATIENT
  Age: 80 Year
  Sex: Male
  Weight: 81 kg

DRUGS (13)
  1. VENCLEXTA [Suspect]
     Active Substance: VENETOCLAX
     Indication: CHRONIC LYMPHOCYTIC LEUKAEMIA
     Dosage: 20 MILLIGRAM, QD
     Route: 048
     Dates: start: 20190413, end: 20190419
  2. IMBRUVICA [Suspect]
     Active Substance: IBRUTINIB
     Indication: CHRONIC LYMPHOCYTIC LEUKAEMIA
     Dosage: UNK
     Route: 048
  3. IMBRUVICA [Suspect]
     Active Substance: IBRUTINIB
     Dosage: 420 MILLIGRAM
     Route: 048
     Dates: start: 20181026
  4. VENCLEXTA [Suspect]
     Active Substance: VENETOCLAX
     Dosage: 1 DOSAGE FORM, QD
     Route: 048
     Dates: start: 20190515, end: 20190531
  5. APIXABAN [Suspect]
     Active Substance: APIXABAN
     Indication: CEREBROVASCULAR ACCIDENT PROPHYLAXIS
     Dosage: UNK
     Route: 065
  6. VENCLEXTA [Suspect]
     Active Substance: VENETOCLAX
     Dosage: 1 DOSAGE FORM, QD
     Route: 048
     Dates: start: 20190427, end: 20190503
  7. VENCLEXTA [Suspect]
     Active Substance: VENETOCLAX
     Dosage: 1 DOSAGE FORM, QD
     Route: 048
     Dates: start: 20190504, end: 20190514
  8. METOPROLOL TARTRATE. [Suspect]
     Active Substance: METOPROLOL TARTRATE
     Indication: CARDIAC DISORDER
     Dosage: UNK
     Route: 048
  9. DOXAZOSIN MESILATE [Concomitant]
     Active Substance: DOXAZOSIN MESYLATE
     Dosage: UNK
     Route: 065
  10. VENCLEXTA [Suspect]
     Active Substance: VENETOCLAX
     Dosage: 1 DOSAGE FORM, QD
     Route: 048
     Dates: start: 20190420, end: 20190426
  11. VENCLEXTA [Suspect]
     Active Substance: VENETOCLAX
     Dosage: 1 DOSAGE FORM, QD
     Route: 048
     Dates: start: 20190601
  12. IMBRUVICA [Suspect]
     Active Substance: IBRUTINIB
     Dosage: 420 MILLIGRAM
     Route: 048
     Dates: start: 20180922, end: 20181025
  13. LORATADINE. [Concomitant]
     Active Substance: LORATADINE
     Dosage: UNK
     Route: 065

REACTIONS (10)
  - Haematemesis [Recovered/Resolved]
  - Malaise [Unknown]
  - Ulcer [Not Recovered/Not Resolved]
  - Insomnia [Not Recovered/Not Resolved]
  - Gastric disorder [Unknown]
  - Night sweats [Unknown]
  - Feeling abnormal [Recovering/Resolving]
  - Fatigue [Unknown]
  - Nausea [Recovering/Resolving]
  - Platelet count decreased [Unknown]

NARRATIVE: CASE EVENT DATE: 2019
